FAERS Safety Report 9711710 (Version 1)
Quarter: 2013Q4

REPORT INFORMATION
  Report Type: Spontaneous
  Country: US (occurrence: US)
  Receive Date: 20131126
  Receipt Date: 20131126
  Transmission Date: 20140711
  Serious: No
  Sender: FDA-Public Use
  Company Number: US-BRISTOL-MYERS SQUIBB COMPANY-19098128

PATIENT
  Age: 45 Year
  Sex: Female
  Weight: 102.04 kg

DRUGS (4)
  1. BYDUREON [Suspect]
     Indication: TYPE 2 DIABETES MELLITUS
     Dosage: LAST INJECTION LAST FRIDAY
     Route: 058
     Dates: start: 20130322, end: 2013
  2. ZYRTEC [Concomitant]
  3. TAGAMET [Concomitant]
  4. BENADRYL [Concomitant]

REACTIONS (2)
  - Skin mass [Unknown]
  - Pruritus generalised [Unknown]
